FAERS Safety Report 9836521 (Version 4)
Quarter: 2014Q2

REPORT INFORMATION
  Report Type: Spontaneous
  Country: MX (occurrence: MX)
  Receive Date: 20140123
  Receipt Date: 20140530
  Transmission Date: 20141212
  Serious: Yes (Hospitalization, Disabling)
  Sender: FDA-Public Use
  Company Number: MX-AMGEN-MEXSP2014004145

PATIENT
  Sex: Male

DRUGS (1)
  1. NEULASTIM [Suspect]
     Indication: NEUTROPENIA
     Dosage: 6MG/0.6ML (6MG)
     Route: 058
     Dates: start: 20140112

REACTIONS (9)
  - Hyperventilation [Recovering/Resolving]
  - Somnolence [Recovering/Resolving]
  - Fatigue [Recovering/Resolving]
  - Dizziness [Recovering/Resolving]
  - Paraesthesia [Recovering/Resolving]
  - Vertigo [Recovering/Resolving]
  - Chills [Recovering/Resolving]
  - Cough [Recovering/Resolving]
  - Haemoglobin decreased [Recovering/Resolving]
